FAERS Safety Report 23314322 (Version 1)
Quarter: 2023Q4

REPORT INFORMATION
  Report Type: Report from Study
  Country: US (occurrence: US)
  Receive Date: 20231219
  Receipt Date: 20231219
  Transmission Date: 20240109
  Serious: No
  Sender: FDA-Public Use
  Company Number: US-HLS-202300831

PATIENT
  Age: 77 Year

DRUGS (2)
  1. CLOZAPINE [Suspect]
     Active Substance: CLOZAPINE
     Indication: Agitation
     Dosage: 25 MG IN THE MORNING, 12 MG AT NOON AND 50 MG AT BED TIME
     Route: 048
     Dates: start: 20230724, end: 20230814
  2. CLOZAPINE [Suspect]
     Active Substance: CLOZAPINE
     Indication: Dementia
     Dosage: 25 MG IN THE MORNING, 12 MG AT NOON AND 50 MG AT BED TIME
     Route: 048
     Dates: start: 20230724, end: 20230814

REACTIONS (1)
  - Off label use [Recovered/Resolved]

NARRATIVE: CASE EVENT DATE: 20230724
